FAERS Safety Report 7545518-8 (Version None)
Quarter: 2011Q2

REPORT INFORMATION
  Report Type: 
  Country: None (occurrence: None)
  Receive Date: 20110614
  Receipt Date: 20110121
  Transmission Date: 20111010
  Serious: Yes (Hospitalization, Other)
  Sender: FDA-Public Use
  Company Number: US-BAYER-200939483NA

PATIENT
  Age: 31 Year
  Sex: Female
  Weight: 76.364 kg

DRUGS (5)
  1. ANTIBIOTICS [Concomitant]
     Indication: PRODUCT USED FOR UNKNOWN INDICATION
     Dosage: AS USED DOSE: UNK
     Route: 065
  2. YASMIN [Suspect]
     Indication: PRODUCT USED FOR UNKNOWN INDICATION
     Route: 048
     Dates: start: 20060501, end: 20061001
  3. UNKNOWN DRUG [Concomitant]
     Indication: ASTHMA
  4. UNKNOWN DRUG [Concomitant]
     Indication: DYSPNOEA
     Dosage: AS USED DOSE: UNK
     Route: 065
  5. CLARITIN [Concomitant]
     Indication: PRODUCT USED FOR UNKNOWN INDICATION
     Dosage: AS USED DOSE: UNK
     Route: 065

REACTIONS (5)
  - INJURY [None]
  - CHEST PAIN [None]
  - COAGULOPATHY [None]
  - PULMONARY EMBOLISM [None]
  - DYSPNOEA [None]
